FAERS Safety Report 13965103 (Version 1)
Quarter: 2017Q3

REPORT INFORMATION
  Report Type: Spontaneous
  Country: US (occurrence: US)
  Receive Date: 20170913
  Receipt Date: 20170913
  Transmission Date: 20171128
  Serious: No
  Sender: FDA-Public Use
  Company Number: US-PERRIGO-17US023720

PATIENT
  Age: 56 Year
  Sex: Female
  Weight: 38.55 kg

DRUGS (6)
  1. EVAMIST [Suspect]
     Active Substance: ESTRADIOL
     Dosage: 1.53 MG, QOD
     Route: 062
     Dates: end: 2016
  2. EVAMIST [Suspect]
     Active Substance: ESTRADIOL
     Dosage: 1.53 MG, EVERY 10 DAYS
     Route: 062
     Dates: start: 2016
  3. PROGESTERONE. [Concomitant]
     Active Substance: PROGESTERONE
     Indication: HORMONE REPLACEMENT THERAPY
     Dosage: UNK
     Route: 065
  4. LIPID MODIFYING AGENTS [Concomitant]
     Active Substance: UNSPECIFIED INGREDIENT
     Indication: BLOOD CHOLESTEROL INCREASED
     Dosage: UNK
     Route: 065
  5. THYROID THERAPY [Concomitant]
     Active Substance: UNSPECIFIED INGREDIENT
     Indication: THYROID DISORDER
     Dosage: UNK
     Route: 065
  6. EVAMIST [Suspect]
     Active Substance: ESTRADIOL
     Indication: HORMONE REPLACEMENT THERAPY
     Dosage: 1.53 MG, QD
     Route: 062
     Dates: start: 2012, end: 2016

REACTIONS (2)
  - Inappropriate schedule of drug administration [Unknown]
  - Condition aggravated [Unknown]

NARRATIVE: CASE EVENT DATE: 2016
